FAERS Safety Report 6769463-0 (Version None)
Quarter: 2010Q2

REPORT INFORMATION
  Report Type: 
  Country: None (occurrence: None)
  Receive Date: 20100604
  Receipt Date: 20100528
  Transmission Date: 20101027
  Serious: Yes (Other)
  Sender: FDA-Public Use
  Company Number: 2010SP008483

PATIENT
  Sex: Female

DRUGS (9)
  1. POTASSIUM CHLORIDE [Suspect]
     Indication: DRUG USE FOR UNKNOWN INDICATION
     Dosage: 1.5 GM;QD;PO
     Route: 048
  2. ASAPHEN (ACETYLSALICYLIC ACID /00002701/) [Suspect]
     Dosage: 80 MG;QD;PO
     Route: 048
  3. CORTEF [Suspect]
     Dosage: 10 MG, BID, PO
     Route: 048
  4. PRAVASTATIN [Suspect]
     Dosage: 40MG MG;HS; PO
     Route: 048
  5. ACTONEL [Concomitant]
  6. CALCIUM CARBONATE [Concomitant]
  7. OSTEOFORTE [Concomitant]
  8. METHYLPHENIDATE [Concomitant]
  9. SYNTHROID [Concomitant]

REACTIONS (3)
  - ASTHENIA [None]
  - DIZZINESS [None]
  - FALL [None]
